FAERS Safety Report 20361949 (Version 1)
Quarter: 2022Q1

REPORT INFORMATION
  Report Type: Spontaneous
  Country: ES (occurrence: ES)
  Receive Date: 20220121
  Receipt Date: 20220121
  Transmission Date: 20220423
  Serious: Yes (Hospitalization)
  Sender: FDA-Public Use
  Company Number: None

PATIENT
  Age: 76 Year
  Sex: Male

DRUGS (2)
  1. CARBOPLATIN [Suspect]
     Active Substance: CARBOPLATIN
     Dosage: CARBOPLATIN (2323A)
     Route: 065
     Dates: start: 20201130
  2. ETOPOSIDE [Concomitant]
     Active Substance: ETOPOSIDE
     Dosage: ETOPOSIDE (518A)
     Dates: start: 20201130

REACTIONS (3)
  - Anaemia [Unknown]
  - Febrile neutropenia [Unknown]
  - Thrombocytopenia [Unknown]

NARRATIVE: CASE EVENT DATE: 20210302
